FAERS Safety Report 6120053-2 (Version None)
Quarter: 2009Q1

REPORT INFORMATION
  Report Type: 
  Country: None (occurrence: None)
  Receive Date: 20090316
  Receipt Date: 20090309
  Transmission Date: 20090719
  Serious: Yes (Hospitalization)
  Sender: FDA-Public Use
  Company Number: US-AMGEN-QUU336126

PATIENT
  Sex: Male

DRUGS (3)
  1. ENBREL [Suspect]
     Indication: RHEUMATOID ARTHRITIS
     Route: 058
     Dates: start: 19990101
  2. PREDNISONE [Concomitant]
  3. MAGNESIUM SULFATE [Concomitant]

REACTIONS (7)
  - ARTHRALGIA [None]
  - DIARRHOEA [None]
  - FATIGUE [None]
  - INJECTION SITE IRRITATION [None]
  - INTERVERTEBRAL DISC DISORDER [None]
  - MUSCULOSKELETAL STIFFNESS [None]
  - OSTEOPOROSIS [None]
